FAERS Safety Report 8774022 (Version 3)
Quarter: 2013Q1

REPORT INFORMATION
  Report Type: Report from Study
  Country: US (occurrence: US)
  Receive Date: 20120908
  Receipt Date: 20130103
  Transmission Date: 20140127
  Serious: Yes (Hospitalization)
  Sender: FDA-Public Use
  Company Number: US-ABBOTT-12P-163-0974139-00

PATIENT
  Age: 64 None
  Sex: Female
  Weight: 70.37 kg

DRUGS (11)
  1. HUMIRA 40 MG/0.8 ML PEN [Suspect]
     Indication: RHEUMATOID ARTHRITIS
     Dates: start: 201111
  2. VIBRAMYCIN [Suspect]
  3. IGG [Concomitant]
     Indication: BLOOD IMMUNOGLOBULIN G DECREASED
     Dosage: 30GRAM PER MONTH
  4. PREDNISONE [Concomitant]
     Indication: RHEUMATOID ARTHRITIS
     Dosage: 5MG DAILY
  5. METHOTREXATE [Concomitant]
     Indication: RHEUMATOID ARTHRITIS
     Dosage: 20MG WEEKLY
     Route: 058
  6. PLAQUENIL [Concomitant]
     Indication: RHEUMATOID ARTHRITIS
     Dosage: 1 PILL DAILY
  7. FOLIC ACID [Concomitant]
     Indication: PRODUCT USED FOR UNKNOWN INDICATION
     Dosage: DAILY
  8. BLOOD PRESSURE PILL [Concomitant]
     Indication: HYPERTENSION
     Dosage: DAILY
  9. PRADAXIA [Concomitant]
     Indication: PRODUCT USED FOR UNKNOWN INDICATION
  10. VERAPAMIL [Concomitant]
     Indication: PRODUCT USED FOR UNKNOWN INDICATION
  11. DIOVAN [Concomitant]
     Indication: PRODUCT USED FOR UNKNOWN INDICATION

REACTIONS (9)
  - Pyrexia [Unknown]
  - Cough [Unknown]
  - Oral pain [Unknown]
  - Rash vesicular [Unknown]
  - Rash pustular [Unknown]
  - Autoimmune thyroiditis [Unknown]
  - Injection site pain [Unknown]
  - Rash [Unknown]
  - Pain [Unknown]
